FAERS Safety Report 10541300 (Version 1)
Quarter: 2014Q4

REPORT INFORMATION
  Report Type: Spontaneous
  Country: US (occurrence: None)
  Receive Date: 20141010
  Receipt Date: 20141010
  Transmission Date: 20150529
  Serious: No
  Sender: FDA-Public Use
  Company Number: 163-POMAL-14053687

PATIENT
  Age: 85 Year
  Sex: Male
  Weight: 87.54 kg

DRUGS (12)
  1. SIMVASTATIN (SIMVASTATIN) [Concomitant]
     Active Substance: SIMVASTATIN
  2. LATANOPROST (LATANOPROST) [Concomitant]
  3. FLUTICASONE PROPIONATE (FLUTICASONE PROPIONATE) [Concomitant]
  4. POMALYST [Suspect]
     Active Substance: POMALIDOMIDE
     Indication: PLASMA CELL MYELOMA
     Dosage: 21 IN 35 D
     Route: 048
     Dates: start: 20131127
  5. DEXAMETHASONE (DEXAMETHASONE) [Concomitant]
     Active Substance: DEXAMETHASONE
  6. RALOXIFENE HCL (RALOXIFENE HYDROCHLORIDE) [Concomitant]
  7. WARFARIN SODIUM (WARFARIN SODIUM) [Concomitant]
     Active Substance: WARFARIN SODIUM
  8. ACYCLOVIR (ACYCLOVIR) [Concomitant]
     Active Substance: ACYCLOVIR
  9. ALLOPURINOL (ALLOPURINOL) [Concomitant]
     Active Substance: ALLOPURINOL
  10. POTASSIUM (POTASSIUM) [Concomitant]
     Active Substance: POTASSIUM
  11. DUCODYL (BISACODYL) (5 MILLIGRAM, UNKNOWN) [Concomitant]
  12. SENOKOT (SENNA FRUIT) [Concomitant]

REACTIONS (1)
  - Body height decreased [None]
